FAERS Safety Report 8382969 (Version 4)
Quarter: 2015Q2

REPORT INFORMATION
  Report Type: Report from Study
  Country: US (occurrence: US)
  Receive Date: 20120201
  Receipt Date: 20150624
  Transmission Date: 20150821
  Serious: Yes (Death, Other)
  Sender: FDA-Public Use
  Company Number: US-ROCHE-1035070

PATIENT
  Sex: Female
  Weight: 57.1 kg

DRUGS (42)
  1. AVASTIN [Suspect]
     Active Substance: BEVACIZUMAB
     Indication: BREAST CANCER FEMALE
     Route: 042
     Dates: start: 20070504
  2. XELODA [Suspect]
     Active Substance: CAPECITABINE
     Indication: PRODUCT USED FOR UNKNOWN INDICATION
     Route: 065
  3. NEUPOGEN [Concomitant]
     Active Substance: FILGRASTIM
     Route: 042
  4. TAXOL [Concomitant]
     Active Substance: PACLITAXEL
     Dosage: 70 MG/M2
     Route: 042
  5. GEMZAR [Concomitant]
     Active Substance: GEMCITABINE HYDROCHLORIDE
     Dosage: 750 MG/M2
     Route: 042
  6. FASLODEX [Concomitant]
     Active Substance: FULVESTRANT
     Route: 030
  7. BENADRYL [Concomitant]
     Active Substance: DIPHENHYDRAMINE HYDROCHLORIDE
     Route: 042
  8. NAVELBINE [Concomitant]
     Active Substance: VINORELBINE TARTRATE
     Route: 065
  9. LAPATINIB [Concomitant]
     Active Substance: LAPATINIB
  10. CARBOPLATIN. [Concomitant]
     Active Substance: CARBOPLATIN
     Route: 042
  11. CISPLATIN. [Concomitant]
     Active Substance: CISPLATIN
     Route: 042
  12. AVASTIN [Suspect]
     Active Substance: BEVACIZUMAB
     Dosage: 5 MG/KG
     Route: 042
  13. HERCEPTIN [Suspect]
     Active Substance: TRASTUZUMAB
     Indication: BREAST CANCER FEMALE
     Route: 042
  14. HERCEPTIN [Suspect]
     Active Substance: TRASTUZUMAB
     Route: 042
  15. DECADRON [Concomitant]
     Active Substance: DEXAMETHASONE
     Route: 042
  16. LASIX [Concomitant]
     Active Substance: FUROSEMIDE
     Route: 042
  17. CIMETIDINE [Concomitant]
     Active Substance: CIMETIDINE
     Route: 042
  18. VINORELBINE [Concomitant]
     Active Substance: VINORELBINE\VINORELBINE TARTRATE
  19. GEMCITABINE [Concomitant]
     Active Substance: GEMCITABINE\GEMCITABINE HYDROCHLORIDE
     Dosage: 02-MAY-2007
     Route: 065
  20. ULTRAVIST [Concomitant]
     Active Substance: IOPROMIDE
  21. EPIRUBICIN [Concomitant]
     Active Substance: EPIRUBICIN
  22. HERCEPTIN [Suspect]
     Active Substance: TRASTUZUMAB
     Route: 042
  23. CARBOPLATIN. [Concomitant]
     Active Substance: CARBOPLATIN
     Route: 065
  24. BENADRYL [Concomitant]
     Active Substance: DIPHENHYDRAMINE HYDROCHLORIDE
     Route: 042
  25. ATIVAN [Concomitant]
     Active Substance: LORAZEPAM
     Dosage: INTRAVENOUS/ ORAL AS REQUIRED
     Route: 065
  26. ZANTAC [Concomitant]
     Active Substance: RANITIDINE HYDROCHLORIDE
     Route: 042
  27. LETROZOLE. [Concomitant]
     Active Substance: LETROZOLE
  28. ALBUTEROL. [Concomitant]
     Active Substance: ALBUTEROL
     Indication: DYSPNOEA
     Dosage: 2 PUFFS QID
     Route: 065
  29. ZOFRAN [Concomitant]
     Active Substance: ONDANSETRON HYDROCHLORIDE
     Route: 042
  30. TYLENOL [Concomitant]
     Active Substance: ACETAMINOPHEN
     Route: 048
  31. PREDNISONE. [Concomitant]
     Active Substance: PREDNISONE
     Indication: ADRENAL INSUFFICIENCY
     Route: 065
  32. DECADRON [Concomitant]
     Active Substance: DEXAMETHASONE
     Route: 042
  33. GEMZAR [Concomitant]
     Active Substance: GEMCITABINE HYDROCHLORIDE
     Route: 042
  34. ZOFRAN [Concomitant]
     Active Substance: ONDANSETRON HYDROCHLORIDE
     Route: 042
  35. EXEMESTANE. [Concomitant]
     Active Substance: EXEMESTANE
     Route: 048
  36. ROXANOL [Concomitant]
     Active Substance: MORPHINE SULFATE
  37. VISIPAQUE [Concomitant]
     Active Substance: IODIXANOL
  38. HERCEPTIN [Suspect]
     Active Substance: TRASTUZUMAB
     Route: 042
  39. GEMCITABINE [Concomitant]
     Active Substance: GEMCITABINE\GEMCITABINE HYDROCHLORIDE
     Dosage: 150 MG/M2
     Route: 042
  40. ESTRADIOL. [Concomitant]
     Active Substance: ESTRADIOL
  41. LETROZOLE. [Concomitant]
     Active Substance: LETROZOLE
  42. ANCEF (UNITED STATES) [Concomitant]
     Route: 042

REACTIONS (22)
  - Death [Fatal]
  - Metastases to lymph nodes [Unknown]
  - Fatigue [Unknown]
  - Disease progression [Unknown]
  - Epistaxis [Unknown]
  - Abdominal discomfort [Recovered/Resolved]
  - Dyspnoea [Unknown]
  - Diarrhoea [Unknown]
  - Cough [Unknown]
  - Palpitations [Unknown]
  - Drug ineffective [Unknown]
  - Exercise tolerance decreased [Unknown]
  - Decreased appetite [Unknown]
  - Hypoxia [Unknown]
  - Hydronephrosis [Unknown]
  - Intestinal infarction [Unknown]
  - Metastases to skin [Unknown]
  - Metastasis [Unknown]
  - Metastases to lung [Unknown]
  - Nausea [Unknown]
  - Neutropenia [Unknown]
  - Rash [Unknown]
